FAERS Safety Report 5925668-X (Version None)
Quarter: 2008Q4

REPORT INFORMATION
  Report Type: 
  Country: None (occurrence: None)
  Receive Date: 20080919
  Receipt Date: 20080623
  Transmission Date: 20090506
  Serious: No
  Sender: FDA-Public Use
  Company Number: US-WYE-H04706508

PATIENT
  Age: 55 Year
  Sex: Male
  Weight: 113.5 kg

DRUGS (2)
  1. PRISTIQ [Suspect]
     Indication: DEPRESSION
     Dosage: 50 MG 1X PER 1 DAY, ORAL
     Route: 048
     Dates: start: 20080613
  2. FLONASE [Concomitant]

REACTIONS (2)
  - SOMNOLENCE [None]
  - YAWNING [None]
